FAERS Safety Report 8270022-1 (Version None)
Quarter: 2012Q1

REPORT INFORMATION
  Report Type: 
  Country: None (occurrence: None)
  Receive Date: 20120327
  Receipt Date: 20100302
  Transmission Date: 20120608
  Serious: Yes (Hospitalization)
  Sender: FDA-Public Use
  Company Number: PHHY2010US15854

PATIENT
  Age: 88 Year
  Sex: Female

DRUGS (2)
  1. GLEEVEC [Suspect]
     Indication: GASTROINTESTINAL STROMAL TUMOUR
     Dosage: ORAL; 400 MG, QD, ORAL
     Route: 048
  2. SUTENT [Concomitant]

REACTIONS (3)
  - GASTROINTESTINAL STROMAL TUMOUR [None]
  - FATIGUE [None]
  - TUMOUR EXCISION [None]
